FAERS Safety Report 25169315 (Version 1)
Quarter: 2025Q2

REPORT INFORMATION
  Report Type: Spontaneous
  Country: US (occurrence: US)
  Receive Date: 20250407
  Receipt Date: 20250407
  Transmission Date: 20250717
  Serious: Yes (Other)
  Sender: AMGEN
  Company Number: US-AMGEN-USASP2025061867

PATIENT

DRUGS (1)
  1. RITUXIMAB [Suspect]
     Active Substance: RITUXIMAB
     Indication: Obsessive-compulsive disorder
     Route: 065

REACTIONS (20)
  - Hypogammaglobulinaemia [Unknown]
  - Drug effective for unapproved indication [Unknown]
  - Drug ineffective for unapproved indication [Unknown]
  - Infusion related reaction [Unknown]
  - Ear infection [Unknown]
  - Skin infection [Unknown]
  - Off label use [Unknown]
  - Tachypnoea [Unknown]
  - Psychiatric symptom [Recovered/Resolved]
  - Tachycardia [Unknown]
  - Pain [Unknown]
  - Urticaria [Unknown]
  - Hypotension [Unknown]
  - Vomiting [Unknown]
  - Pyrexia [Unknown]
  - Arthralgia [Unknown]
  - Infection [Unknown]
  - Rhinitis [Unknown]
  - Pharyngitis [Unknown]
  - Sinusitis [Unknown]
